FAERS Safety Report 5627445-6 (Version None)
Quarter: 2008Q1

REPORT INFORMATION
  Report Type: 
  Country: None (occurrence: None)
  Receive Date: 20080215
  Receipt Date: 20080208
  Transmission Date: 20080703
  Serious: Yes (Other)
  Sender: FDA-Public Use
  Company Number: US-ASTRAZENECA-2008UW02845

PATIENT
  Age: 53 Year
  Sex: Female
  Weight: 81.6 kg

DRUGS (4)
  1. ARIMIDEX [Suspect]
     Indication: BREAST CANCER
     Route: 048
     Dates: start: 20070101
  2. ECHINACEA [Concomitant]
  3. CALCITRATE [Concomitant]
  4. VITAMIN D [Concomitant]

REACTIONS (6)
  - ARTHRALGIA [None]
  - DRY SKIN [None]
  - RASH [None]
  - SKIN DISORDER [None]
  - SKIN IRRITATION [None]
  - WEIGHT INCREASED [None]
